FAERS Safety Report 10307374 (Version 1)
Quarter: 2014Q3

REPORT INFORMATION
  Report Type: Spontaneous
  Country: US (occurrence: None)
  Receive Date: 20140714
  Receipt Date: 20140714
  Transmission Date: 20150326
  Serious: No
  Sender: FDA-Public Use
  Company Number: None

PATIENT
  Age: 79 Year
  Sex: Male

DRUGS (3)
  1. XTANDI [Suspect]
     Active Substance: ENZALUTAMIDE
     Indication: PROSTATE CANCER
     Route: 048
     Dates: start: 20140709
  2. FUROSEMIDE. [Concomitant]
     Active Substance: FUROSEMIDE
  3. BENAZEPRIL [Concomitant]
     Active Substance: BENAZEPRIL\BENAZEPRIL HYDROCHLORIDE

REACTIONS (5)
  - Paraesthesia [None]
  - Hypoaesthesia [None]
  - Back pain [None]
  - Myalgia [None]
  - Peripheral swelling [None]

NARRATIVE: CASE EVENT DATE: 20140711
